FAERS Safety Report 8391084-7 (Version None)
Quarter: 2012Q2

REPORT INFORMATION
  Report Type: 
  Country: None (occurrence: None)
  Receive Date: 20120529
  Receipt Date: 20120517
  Transmission Date: 20120825
  Serious: Yes (Other)
  Sender: FDA-Public Use
  Company Number: US-SANOFI-AVENTIS-2012SA035715

PATIENT
  Sex: Male

DRUGS (2)
  1. ANTACIDS [Concomitant]
  2. PLAVIX [Suspect]
     Dates: start: 20090101

REACTIONS (3)
  - DRUG INEFFECTIVE [None]
  - DRUG INTERACTION [None]
  - THROMBOSIS [None]
